FAERS Safety Report 16323804 (Version 1)
Quarter: 2019Q2

REPORT INFORMATION
  Report Type: Spontaneous
  Country: US (occurrence: US)
  Receive Date: 20190517
  Receipt Date: 20190517
  Transmission Date: 20190711
  Serious: Yes (Other)
  Sender: FDA-Public Use
  Company Number: PHEH2019US021061

PATIENT
  Sex: Male

DRUGS (1)
  1. TASIGNA [Suspect]
     Active Substance: NILOTINIB
     Indication: CHRONIC MYELOID LEUKAEMIA
     Dosage: 01 DF, BID
     Route: 048

REACTIONS (14)
  - Coeliac artery stenosis [Unknown]
  - Acute myocardial infarction [Unknown]
  - Hyperlipidaemia [Unknown]
  - Chest pain [Unknown]
  - Pleural effusion [Unknown]
  - Dyspnoea [Unknown]
  - Nephrolithiasis [Unknown]
  - Atrial fibrillation [Unknown]
  - Pulmonary oedema [Unknown]
  - Left ventricular dilatation [Unknown]
  - Atelectasis [Unknown]
  - Coronary artery disease [Unknown]
  - Angina unstable [Unknown]
  - Peripheral vascular disorder [Unknown]
